FAERS Safety Report 4837210-5 (Version None)
Quarter: 2005Q4

REPORT INFORMATION
  Report Type: 
  Country: None (occurrence: None)
  Receive Date: 20051122
  Receipt Date: 20051110
  Transmission Date: 20060501
  Serious: Yes (Disabling)
  Sender: FDA-Public Use
  Company Number: 2005-01468

PATIENT
  Age: 76 Year
  Sex: Female
  Weight: 69.1 kg

DRUGS (20)
  1. VELCADE [Suspect]
     Indication: MULTIPLE MYELOMA
     Dosage: SEE IMAGE
     Route: 042
     Dates: start: 20050329, end: 20050401
  2. VELCADE [Suspect]
     Indication: MULTIPLE MYELOMA
     Dosage: SEE IMAGE
     Route: 042
     Dates: start: 20050809, end: 20050920
  3. ANZEMET         (DOLASETRON MESILATE) [Concomitant]
  4. HEPARIN [Concomitant]
  5. ZOMETA [Concomitant]
  6. DEXMETHSONE [Concomitant]
  7. DEXTROSE INFUSION FLUID 5% (GLUCOSE) [Concomitant]
  8. SODIUM CHLORIDE [Concomitant]
  9. DIURETICS [Concomitant]
  10. PLAVIX [Concomitant]
  11. CENTRUM SILVER [Concomitant]
  12. MAGNESIUM CHLORIDE ANHYDROUS [Concomitant]
  13. LABETALOL HCL [Concomitant]
  14. ASPIRIN [Concomitant]
  15. LIPITOR [Concomitant]
  16. IBUPROFEN [Concomitant]
  17. NASACOR (TRIAMCINOLONE ACETONIDE) [Concomitant]
  18. LORATADINE [Concomitant]
  19. DARVOCET-N (PARACETAMOL, DEXTROPROPOXYPHENE NAPSILATE) [Concomitant]
  20. HYDROCHLOROTHIAZIDE [Concomitant]

REACTIONS (12)
  - ARTHRALGIA [None]
  - DIZZINESS [None]
  - ECTROPION [None]
  - EYELID OEDEMA [None]
  - EYELID PTOSIS [None]
  - HYPERHIDROSIS [None]
  - IMPAIRED DRIVING ABILITY [None]
  - JOINT SWELLING [None]
  - MYALGIA [None]
  - NAUSEA [None]
  - ORTHOSTATIC HYPOTENSION [None]
  - VISUAL ACUITY REDUCED [None]
